FAERS Safety Report 24118604 (Version 2)
Quarter: 2024Q3

REPORT INFORMATION
  Report Type: Spontaneous
  Country: US (occurrence: US)
  Receive Date: 20240722
  Receipt Date: 20240725
  Transmission Date: 20241017
  Serious: Yes (Other)
  Sender: PFIZER
  Company Number: US-PFIZER INC-202400215416

PATIENT
  Age: 65 Year
  Sex: Female

DRUGS (2)
  1. LORBRENA [Suspect]
     Active Substance: LORLATINIB
     Indication: Adenocarcinoma
     Dosage: 100MG; 1 TABLET A DAY
     Dates: start: 20240617, end: 20240624
  2. LORBRENA [Suspect]
     Active Substance: LORLATINIB
     Indication: Metastatic neoplasm
     Dosage: TAKE 3 CAPSULES (75 MG) BY MOUTH DAILY /  25 MG TABLETS (3 TABLETS) BY MOUTH DAILY
     Route: 048

REACTIONS (1)
  - Hallucination [Recovered/Resolved]

NARRATIVE: CASE EVENT DATE: 20240619
